FAERS Safety Report 18239754 (Version 1)
Quarter: 2020Q3

REPORT INFORMATION
  Report Type: Spontaneous
  Country: US (occurrence: US)
  Receive Date: 20200908
  Receipt Date: 20200908
  Transmission Date: 20201103
  Serious: Yes (Hospitalization)
  Sender: FDA-Public Use
  Company Number: US-NOVITIUMPHARMA-2020USNVP00042

PATIENT
  Age: 69 Year
  Sex: Female

DRUGS (3)
  1. DAPSONE TABLETS, USP 100 MG [Suspect]
     Active Substance: DAPSONE
     Indication: PROPHYLAXIS
  2. DAPSONE TABLETS, USP 100 MG [Suspect]
     Active Substance: DAPSONE
     Indication: PROPHYLAXIS
  3. TOCILIZUMAB. [Concomitant]
     Active Substance: TOCILIZUMAB

REACTIONS (10)
  - Respiratory distress [Unknown]
  - Leukocytosis [Recovering/Resolving]
  - Confusional state [Recovering/Resolving]
  - Asthenia [Recovering/Resolving]
  - Gait disturbance [Recovering/Resolving]
  - Off label use [Unknown]
  - Mucosal disorder [Recovering/Resolving]
  - Methaemoglobinaemia [Recovering/Resolving]
  - Amnesia [Recovering/Resolving]
  - Fall [Unknown]
